FAERS Safety Report 4497989-1 (Version None)
Quarter: 2004Q4

REPORT INFORMATION
  Report Type: 
  Country: None (occurrence: None)
  Receive Date: 20041109
  Receipt Date: 20041109
  Transmission Date: 20050328
  Serious: Yes (Life-Threatening, Hospitalization)
  Sender: FDA-Public Use
  Company Number: None

PATIENT
  Age: 81 Year
  Sex: Male
  Weight: 77.5 kg

DRUGS (6)
  1. SIMVASTATIN [Suspect]
     Indication: HYPERLIPIDAEMIA
     Dosage: 80 MG HS ORAL
     Route: 048
     Dates: start: 20020219, end: 20040807
  2. GEMFIBROZIL [Suspect]
     Indication: HYPERLIPIDAEMIA
     Dosage: 300 BID ORAL MG
     Route: 048
     Dates: start: 20040218, end: 20040807
  3. METOPROLOL [Concomitant]
  4. CAPTOPRIL [Concomitant]
  5. LEVOTHYROXINE SODIUM [Concomitant]
  6. RANITIDINE [Concomitant]

REACTIONS (11)
  - ARTHRALGIA [None]
  - CHANGE OF BOWEL HABIT [None]
  - CHROMATURIA [None]
  - DECREASED APPETITE [None]
  - DIALYSIS [None]
  - FAECAL OCCULT BLOOD [None]
  - IRON DEFICIENCY ANAEMIA [None]
  - MUSCLE CRAMP [None]
  - RENAL FAILURE ACUTE [None]
  - RHABDOMYOLYSIS [None]
  - THIRST [None]
